FAERS Safety Report 4412137-1 (Version None)
Quarter: 2004Q3

REPORT INFORMATION
  Report Type: 
  Country: None (occurrence: None)
  Receive Date: 20040729
  Receipt Date: 20040729
  Transmission Date: 20050211
  Serious: Yes (Other)
  Sender: FDA-Public Use
  Company Number: None

PATIENT
  Age: 50 Year
  Sex: Female

DRUGS (1)
  1. SWIM EAR [Suspect]
     Dosage: AURICULAR
     Route: 001

REACTIONS (2)
  - EYE IRRITATION [None]
  - MEDICATION ERROR [None]
